FAERS Safety Report 6825110-0 (Version None)
Quarter: 2010Q3

REPORT INFORMATION
  Report Type: 
  Country: None (occurrence: None)
  Receive Date: 20100708
  Receipt Date: 20070109
  Transmission Date: 20110219
  Serious: No
  Sender: FDA-Public Use
  Company Number: US-PFIZER INC-2007002955

PATIENT
  Sex: Female
  Weight: 52.16 kg

DRUGS (16)
  1. CHANTIX [Suspect]
     Indication: SMOKING CESSATION THERAPY
     Dates: start: 20070105
  2. AMBIEN [Concomitant]
  3. COMPAZINE [Concomitant]
     Indication: RETCHING
  4. COMPAZINE [Concomitant]
     Indication: NAUSEA
  5. NORVASC [Concomitant]
  6. ASPIRIN [Concomitant]
  7. WELLBUTRIN [Concomitant]
  8. PROTONIX [Concomitant]
  9. MONTELUKAST SODIUM [Concomitant]
  10. XANAX [Concomitant]
     Indication: RETCHING
  11. XANAX [Concomitant]
     Indication: NAUSEA
  12. PERCOCET [Concomitant]
     Indication: ROTATOR CUFF SYNDROME
  13. ALBUTEROL [Concomitant]
     Indication: ASTHMA
  14. FLONASE [Concomitant]
     Indication: ASTHMA
  15. XALATAN [Concomitant]
     Indication: GLAUCOMA
  16. REQUIP [Concomitant]
     Indication: RESTLESS LEGS SYNDROME

REACTIONS (2)
  - SLEEP DISORDER [None]
  - THINKING ABNORMAL [None]
